FAERS Safety Report 16627646 (Version 1)
Quarter: 2019Q3

REPORT INFORMATION
  Report Type: Report from Study
  Country: DE (occurrence: DE)
  Receive Date: 20190724
  Receipt Date: 20190724
  Transmission Date: 20191004
  Serious: Yes (Death, Other)
  Sender: FDA-Public Use
  Company Number: DE-JNJFOC-20190721040

PATIENT
  Age: 81 Year
  Sex: Male
  Weight: 80 kg

DRUGS (1)
  1. RIVAROXABAN [Suspect]
     Active Substance: RIVAROXABAN
     Indication: ATRIAL FIBRILLATION
     Dosage: 20 MG, QD
     Route: 048

REACTIONS (5)
  - Cerebral ventricle collapse [Fatal]
  - Basal ganglia haemorrhage [Fatal]
  - Hemiplegia [Fatal]
  - Disturbance in attention [Fatal]
  - Hypertensive crisis [Fatal]

NARRATIVE: CASE EVENT DATE: 20190710
